FAERS Safety Report 15036513 (Version 2)
Quarter: 2019Q2

REPORT INFORMATION
  Report Type: Spontaneous
  Country: IN (occurrence: IN)
  Receive Date: 20180620
  Receipt Date: 20190419
  Transmission Date: 20190711
  Serious: Yes (Death, Other)
  Sender: FDA-Public Use
  Company Number: IN-PFIZER INC-2018249216

PATIENT
  Age: 24 Year
  Sex: Female
  Weight: 24.99 kg

DRUGS (6)
  1. LINEZOLID. [Suspect]
     Active Substance: LINEZOLID
     Indication: PULMONARY TUBERCULOSIS
     Dosage: 600 MG, 1X/DAY
     Route: 048
     Dates: start: 20160819, end: 20180319
  2. BEDAQUILINE [Suspect]
     Active Substance: BEDAQUILINE
     Indication: PULMONARY TUBERCULOSIS
     Dosage: 100 MG, UNK (TIW)
     Route: 048
     Dates: start: 20170206, end: 20180319
  3. CLOFAZIMINE [Suspect]
     Active Substance: CLOFAZIMINE
     Indication: PULMONARY TUBERCULOSIS
     Dosage: 100 MG, 1X/DAY
     Route: 048
     Dates: start: 20160819, end: 20180319
  4. AMOXICILLIN TRIHYDRATE AND CLAVULANATE POTASS [Suspect]
     Active Substance: AMOXICILLIN\CLAVULANATE POTASSIUM
     Indication: PULMONARY TUBERCULOSIS
     Dosage: 625 MG, 3X/DAY
     Route: 048
     Dates: end: 20180319
  5. DELAMANID [Suspect]
     Active Substance: DELAMANID
     Indication: PULMONARY TUBERCULOSIS
     Dosage: 50 MG, 2X/DAY
     Route: 048
     Dates: start: 20170202, end: 20180319
  6. CILASTATIN SODIUM W/IMIPENEM [Suspect]
     Active Substance: CILASTATIN SODIUM\IMIPENEM
     Indication: PULMONARY TUBERCULOSIS
     Dosage: 1000 MG, 2X/DAY
     Route: 042
     Dates: end: 20180319

REACTIONS (6)
  - Hiccups [Recovered/Resolved]
  - Condition aggravated [Fatal]
  - Treatment noncompliance [Unknown]
  - Cardiac arrest [Fatal]
  - Respiratory failure [Fatal]
  - Tuberculosis [Fatal]

NARRATIVE: CASE EVENT DATE: 20170202
